FAERS Safety Report 12532348 (Version 2)
Quarter: 2016Q3

REPORT INFORMATION
  Report Type: Spontaneous
  Country: US (occurrence: US)
  Receive Date: 20160706
  Receipt Date: 20160803
  Transmission Date: 20161109
  Serious: Yes (Other)
  Sender: FDA-Public Use
  Company Number: US-ABBVIE-16P-163-1668741-00

PATIENT
  Age: 98 Year
  Sex: Male

DRUGS (3)
  1. NIFEDIPINE. [Concomitant]
     Active Substance: NIFEDIPINE
     Indication: HYPERTENSION
     Route: 065
  2. SYNTHROID [Suspect]
     Active Substance: LEVOTHYROXINE SODIUM
     Indication: HYPOTHYROIDISM
     Route: 048
     Dates: start: 201603
  3. FLOMAX [Concomitant]
     Active Substance: TAMSULOSIN HYDROCHLORIDE
     Indication: PRODUCT USED FOR UNKNOWN INDICATION
     Route: 065

REACTIONS (12)
  - Drug dose omission [Recovered/Resolved]
  - Transient ischaemic attack [Unknown]
  - Depression [Not Recovered/Not Resolved]
  - Skin exfoliation [Not Recovered/Not Resolved]
  - Blood pressure increased [Not Recovered/Not Resolved]
  - Overdose [Recovered/Resolved]
  - Arthralgia [Not Recovered/Not Resolved]
  - Blood thyroid stimulating hormone decreased [Unknown]
  - Agitation [Not Recovered/Not Resolved]
  - Dry skin [Not Recovered/Not Resolved]
  - Back pain [Not Recovered/Not Resolved]
  - Eye swelling [Not Recovered/Not Resolved]

NARRATIVE: CASE EVENT DATE: 201606
